FAERS Safety Report 14593878 (Version 2)
Quarter: 2018Q2

REPORT INFORMATION
  Report Type: Spontaneous
  Country: US (occurrence: US)
  Receive Date: 20180302
  Receipt Date: 20180424
  Transmission Date: 20180711
  Serious: Yes (Other)
  Sender: FDA-Public Use
  Company Number: US-ALLERGAN-1811529US

PATIENT
  Age: 78 Year
  Sex: Female

DRUGS (3)
  1. SYNTHROID [Concomitant]
     Active Substance: LEVOTHYROXINE SODIUM
     Indication: HYPOTHYROIDISM
     Dosage: UNK
     Route: 048
  2. LINZESS [Suspect]
     Active Substance: LINACLOTIDE
     Indication: IRRITABLE BOWEL SYNDROME
     Dosage: 145 ?G, QD
     Route: 048
     Dates: start: 2016
  3. LINZESS [Suspect]
     Active Substance: LINACLOTIDE
     Dosage: 75 MG, PRN
     Route: 065

REACTIONS (3)
  - Hypertension [Not Recovered/Not Resolved]
  - Off label use [Unknown]
  - Inappropriate schedule of drug administration [Unknown]
